FAERS Safety Report 13680360 (Version 1)
Quarter: 2017Q2

REPORT INFORMATION
  Report Type: Report from Study
  Country: DE (occurrence: DE)
  Receive Date: 20170622
  Receipt Date: 20170622
  Transmission Date: 20170830
  Serious: Yes (Hospitalization)
  Sender: FDA-Public Use
  Company Number: DE-AMGEN-DEUNI2017019867

PATIENT
  Age: 75 Year
  Sex: Female
  Weight: 100 kg

DRUGS (13)
  1. VIGANTOLETTEN [Concomitant]
     Active Substance: CHOLECALCIFEROL
     Indication: VITAMIN D DEFICIENCY
     Dosage: 1000 UNK, UNK
     Route: 048
     Dates: start: 201610
  2. PRADAXA [Concomitant]
     Active Substance: DABIGATRAN ETEXILATE MESYLATE
     Indication: ATRIAL FIBRILLATION
     Dosage: 150 MG, 2X/DAY
  3. CELEBREX [Concomitant]
     Active Substance: CELECOXIB
     Indication: PAIN
  4. CALCILAC [Concomitant]
     Active Substance: CALCIUM CARBONATE
     Indication: OSTEOPENIA
     Dosage: UNK UNK, 1X/DAY
  5. NOVAMINE [Concomitant]
     Active Substance: ALANINE\ARGININE\ASPARTIC ACID\GLUTAMIC ACID\GLYCINE\HISTIDINE\ISOLEUCINE\LEUCINE\LYSINE ACETATE\METHIONINE\PHENYLALANINE\PROLINE\SERINE\THREONINE\TRYPTOPHAN\TYROSINE\VALINE
     Indication: PAIN
     Dosage: 500 UNK, 3X/DAY
  6. PANTOPRAZOLE [Concomitant]
     Active Substance: PANTOPRAZOLE
     Indication: GASTRITIS
     Dosage: 20 UNK, 1X/DAY
  7. BISOPROLOL [Concomitant]
     Active Substance: BISOPROLOL
     Indication: HYPERTENSION
     Dosage: 2.5 UNK, 1X/DAY
  8. TILIDIN [Concomitant]
     Active Substance: NALOXONE HYDROCHLORIDE\TILIDINE HYDROCHLORIDE
     Indication: PAIN
     Dosage: UNK MG, UNK
     Route: 048
  9. TORASEMIDE [Concomitant]
     Active Substance: TORSEMIDE
     Indication: HYPERTENSION
     Dosage: 10 UNK, 2X/DAY
  10. PANTOZOL [Concomitant]
     Active Substance: PANTOPRAZOLE SODIUM
     Indication: GASTRITIS
     Dosage: 40 UNK, 2X/DAY
  11. CELEBREX [Concomitant]
     Active Substance: CELECOXIB
     Indication: RHEUMATOID ARTHRITIS
     Dosage: UNK
     Route: 048
  12. ETANERCEPT [Suspect]
     Active Substance: ETANERCEPT
     Indication: RHEUMATOID ARTHRITIS
     Dosage: 50 MG, QWK
     Route: 058
     Dates: start: 20160215, end: 20161017
  13. PREDNISOLONE. [Suspect]
     Active Substance: PREDNISOLONE
     Indication: RHEUMATOID ARTHRITIS
     Dosage: 7.5 MG, UNK
     Route: 048

REACTIONS (3)
  - Bronchopulmonary aspergillosis [Not Recovered/Not Resolved]
  - Bronchopulmonary aspergillosis [Not Recovered/Not Resolved]
  - Lung infiltration [Not Recovered/Not Resolved]

NARRATIVE: CASE EVENT DATE: 201610
